FAERS Safety Report 11909610 (Version 1)
Quarter: 2016Q1

REPORT INFORMATION
  Report Type: Spontaneous
  Country: FR (occurrence: FR)
  Receive Date: 20160112
  Receipt Date: 20160112
  Transmission Date: 20160526
  Serious: Yes (Hospitalization)
  Sender: FDA-Public Use
  Company Number: FR-ROCHE-1691896

PATIENT
  Age: 82 Year
  Sex: Female

DRUGS (18)
  1. ZOLPIDEM [Interacting]
     Active Substance: ZOLPIDEM\ZOLPIDEM TARTRATE
     Indication: PRODUCT USED FOR UNKNOWN INDICATION
     Route: 048
     Dates: start: 20150702, end: 20150706
  2. EBIXA [Concomitant]
     Active Substance: MEMANTINE HYDROCHLORIDE
     Route: 048
     Dates: start: 20150702
  3. EBIXA [Concomitant]
     Active Substance: MEMANTINE HYDROCHLORIDE
     Route: 065
  4. CORDARONE [Concomitant]
     Active Substance: AMIODARONE HYDROCHLORIDE
     Dosage: LONG-TERM TREATMENT
     Route: 048
  5. PREVISCAN (FRANCE) [Concomitant]
     Active Substance: FLUINDIONE
     Dosage: LONG-TERM TREATMENT
     Route: 048
  6. TIAPRIDAL [Interacting]
     Active Substance: TIAPRIDE HYDROCHLORIDE
     Route: 065
     Dates: start: 20150702, end: 20150703
  7. KARDEGIC [Concomitant]
     Active Substance: ASPIRIN LYSINE
     Dosage: LONG-TERM TREATMENT
     Route: 048
  8. COVERSYL [Concomitant]
     Active Substance: PERINDOPRIL
     Dosage: LONG-TERM TREATMENT
     Route: 048
  9. ATORVASTATIN [Concomitant]
     Active Substance: ATORVASTATIN
     Dosage: LONG-TERM TREATMENT
     Route: 048
  10. LASILIX [Concomitant]
     Active Substance: FUROSEMIDE
     Route: 002
  11. TIAPRIDAL [Interacting]
     Active Substance: TIAPRIDE HYDROCHLORIDE
     Dosage: EVENING
     Route: 048
     Dates: start: 20150703, end: 20150706
  12. LEXOMIL [Concomitant]
     Active Substance: BROMAZEPAM
     Dosage: LONG-TERM TREATMENT
     Route: 048
  13. TIAPRIDAL [Interacting]
     Active Substance: TIAPRIDE HYDROCHLORIDE
     Indication: DEMENTIA
     Dosage: MORNING
     Route: 048
     Dates: start: 20150703, end: 20150706
  14. PLAVIX [Concomitant]
     Active Substance: CLOPIDOGREL BISULFATE
     Route: 048
  15. VALIUM [Suspect]
     Active Substance: DIAZEPAM
     Indication: PRODUCT USED FOR UNKNOWN INDICATION
     Route: 030
     Dates: start: 20150630, end: 20150630
  16. SERESTA [Interacting]
     Active Substance: OXAZEPAM
     Route: 065
  17. CARDENSIEL [Concomitant]
     Active Substance: BISOPROLOL FUMARATE
     Dosage: LONG-TERM TREATMENT
     Route: 048
  18. SERESTA [Interacting]
     Active Substance: OXAZEPAM
     Indication: ANXIETY
     Route: 048
     Dates: start: 20150702, end: 20150706

REACTIONS (2)
  - Coma [Recovered/Resolved]
  - Drug interaction [Unknown]

NARRATIVE: CASE EVENT DATE: 20150706
